FAERS Safety Report 16038501 (Version 1)
Quarter: 2019Q1

REPORT INFORMATION
  Report Type: Report from Study
  Country: US (occurrence: US)
  Receive Date: 20190305
  Receipt Date: 20190305
  Transmission Date: 20190418
  Serious: Yes (Hospitalization, Other)
  Sender: FDA-Public Use
  Company Number: US-GILEAD-2019-0389605

PATIENT
  Age: 35 Year
  Sex: Male
  Weight: 145.58 kg

DRUGS (11)
  1. HYDROCHLOROTHIAZIDE. [Concomitant]
     Active Substance: HYDROCHLOROTHIAZIDE
     Dosage: UNKNOWN
  2. LOPRESSOR [Concomitant]
     Active Substance: METOPROLOL TARTRATE
     Dosage: UNKNOWN
  3. CLOZARIL [Concomitant]
     Active Substance: CLOZAPINE
     Dosage: UNKNOWN
  4. KLONOPIN [Concomitant]
     Active Substance: CLONAZEPAM
     Dosage: UNKNOWN
  5. CALAN [Concomitant]
     Active Substance: VERAPAMIL HYDROCHLORIDE
     Dosage: UNKNOWN
  6. SOFOSBUVIR W/VELPATASVIR [Suspect]
     Active Substance: SOFOSBUVIR\VELPATASVIR
     Indication: HEPATITIS C
     Dosage: 1 DF, QD
     Route: 048
     Dates: start: 20190111
  7. TOPAMAX [Concomitant]
     Active Substance: TOPIRAMATE
     Dosage: UNKNOWN
  8. TRAZODONE [Concomitant]
     Active Substance: TRAZODONE HYDROCHLORIDE
     Dosage: UNKNOWN
  9. ADDERALL [Concomitant]
     Active Substance: AMPHETAMINE ASPARTATE\AMPHETAMINE SULFATE\DEXTROAMPHETAMINE SACCHARATE\DEXTROAMPHETAMINE SULFATE
     Dosage: UNKNOWN
  10. METHADONE [Concomitant]
     Active Substance: METHADONE HYDROCHLORIDE
     Dosage: UNKNOWN
  11. ZOCOR [Concomitant]
     Active Substance: SIMVASTATIN
     Dosage: UNKNOWN

REACTIONS (9)
  - Fatigue [Not Recovered/Not Resolved]
  - Drooling [Not Recovered/Not Resolved]
  - Head titubation [Not Recovered/Not Resolved]
  - Agitation [Not Recovered/Not Resolved]
  - Suicidal ideation [Unknown]
  - Posture abnormal [Not Recovered/Not Resolved]
  - Slow response to stimuli [Not Recovered/Not Resolved]
  - Depressed mood [Unknown]
  - Overdose [Not Recovered/Not Resolved]

NARRATIVE: CASE EVENT DATE: 201901
